FAERS Safety Report 5812457-X (Version None)
Quarter: 2008Q3

REPORT INFORMATION
  Report Type: 
  Country: None (occurrence: None)
  Receive Date: 20080715
  Receipt Date: 20080715
  Transmission Date: 20090109
  Serious: Yes (Other)
  Sender: FDA-Public Use
  Company Number: None

PATIENT
  Age: 64 Year
  Sex: Female
  Weight: 68.0396 kg

DRUGS (2)
  1. CARTIA XT [Suspect]
     Indication: HYPERTENSION
     Dosage: 1 PILL ONCE A DAY PO
     Route: 048
     Dates: start: 20080712, end: 20080713
  2. CARTIA XT [Suspect]
     Indication: PALPITATIONS
     Dosage: 1 PILL ONCE A DAY PO
     Route: 048
     Dates: start: 20080712, end: 20080713

REACTIONS (1)
  - LIP SWELLING [None]
